FAERS Safety Report 8265474-7 (Version None)
Quarter: 2012Q2

REPORT INFORMATION
  Report Type: 
  Country: None (occurrence: None)
  Receive Date: 20120406
  Receipt Date: 20120403
  Transmission Date: 20120825
  Serious: Yes (Death, Other)
  Sender: FDA-Public Use
  Company Number: AU-PFIZER INC-2012054396

PATIENT
  Age: 55 Year
  Sex: Male

DRUGS (8)
  1. DOXYCYCLINE [Concomitant]
     Indication: ROSACEA
     Dosage: 50 MG, 1X/DAY
     Route: 048
  2. LYRICA [Suspect]
     Dosage: 1200 MG DAILY
  3. LYRICA [Suspect]
     Indication: NEURALGIA
     Dosage: 150 MG, 2X/DAY
     Route: 048
     Dates: start: 20080801
  4. ALCOHOL [Suspect]
     Dosage: UNK
  5. TRAMADOL [Concomitant]
     Indication: BACK PAIN
     Dosage: 100 MG, 4X/DAY
     Route: 048
     Dates: start: 20080101
  6. CYMBALTA [Suspect]
     Indication: DEPRESSION
     Dosage: 60 MG, 1X/DAY
     Route: 048
  7. OMEPRAZOLE [Concomitant]
     Indication: GASTROOESOPHAGEAL REFLUX DISEASE
     Dosage: 20 MG, 1X/DAY
     Route: 048
  8. PANADOL OSTEO [Concomitant]
     Indication: BACK PAIN
     Dosage: 2 DF, 3X/DAY
     Route: 048

REACTIONS (3)
  - COMPLETED SUICIDE [None]
  - OVERDOSE [None]
  - ELEVATED MOOD [None]
